FAERS Safety Report 6492404-0 (Version None)
Quarter: 2009Q4

REPORT INFORMATION
  Report Type: 
  Country: None (occurrence: None)
  Receive Date: 20091214
  Receipt Date: 20091203
  Transmission Date: 20100525
  Serious: Yes (Life-Threatening, Hospitalization)
  Sender: FDA-Public Use
  Company Number: FR-ROCHE-617407

PATIENT
  Sex: Male

DRUGS (6)
  1. MYCOPHENOLATE MOFETIL [Suspect]
     Dosage: UNITS REPORTED: G/D.  FREQUENCY REPORTED AS 2. TEMPORARILY INTERRUPTED.
     Route: 048
     Dates: start: 20080910, end: 20081023
  2. MYCOPHENOLATE MOFETIL [Suspect]
     Dosage: RESTARTED ON A REDUCED DOSE. FREQUENCY REPORTED: 1
     Route: 048
     Dates: start: 20081101
  3. MYCOPHENOLATE MOFETIL [Suspect]
     Dosage: LAST DOSE PRIOR TO SAE: 22 NOV 2008, FREQUENCY REPORTED AS 2
     Route: 048
  4. TACROLIMUS [Suspect]
     Route: 065
     Dates: start: 20081011, end: 20081016
  5. TACROLIMUS [Suspect]
     Route: 065
     Dates: start: 20081017, end: 20081017
  6. TACROLIMUS [Suspect]
     Route: 065
     Dates: start: 20081027, end: 20081027

REACTIONS (6)
  - ASCITES [None]
  - BACTERIAL SEPSIS [None]
  - BILE DUCT STENOSIS [None]
  - BILIARY ANASTOMOSIS COMPLICATION [None]
  - BILIARY FISTULA [None]
  - RENAL FAILURE [None]
